FAERS Safety Report 5796254-X (Version None)
Quarter: 2008Q3

REPORT INFORMATION
  Report Type: 
  Country: None (occurrence: None)
  Receive Date: 20080701
  Receipt Date: 20080624
  Transmission Date: 20090109
  Serious: Yes (Death, Hospitalization, Other)
  Sender: FDA-Public Use
  Company Number: US-PURDUE-USA_2008_0032647

PATIENT
  Age: 56 Year
  Sex: Male

DRUGS (2)
  1. OXYCODONE HCL [Suspect]
     Indication: PAIN
  2. BENZODIAZEPINE DERIVATIVES [Suspect]
     Indication: ANXIETY

REACTIONS (5)
  - DRUG DEPENDENCE [None]
  - DRUG INTERACTION [None]
  - INTENTIONAL DRUG MISUSE [None]
  - MYOCARDIAL INFARCTION [None]
  - SUICIDAL IDEATION [None]
